FAERS Safety Report 17351925 (Version 1)
Quarter: 2020Q1

REPORT INFORMATION
  Report Type: Report from Study
  Country: CO (occurrence: CO)
  Receive Date: 20200130
  Receipt Date: 20200130
  Transmission Date: 20200409
  Serious: No
  Sender: FDA-Public Use
  Company Number: CO-JNJFOC-20191135923

PATIENT
  Age: 60 Year

DRUGS (1)
  1. STELARA [Suspect]
     Active Substance: USTEKINUMAB
     Indication: PSORIASIS
     Route: 058
     Dates: start: 20150106

REACTIONS (2)
  - Product dose omission [Unknown]
  - Liver disorder [Unknown]

NARRATIVE: CASE EVENT DATE: 201507
